FAERS Safety Report 17309073 (Version 3)
Quarter: 2020Q1

REPORT INFORMATION
  Report Type: Spontaneous
  Country: ES (occurrence: ES)
  Receive Date: 20200123
  Receipt Date: 20200204
  Transmission Date: 20200409
  Serious: Yes (Other)
  Sender: FDA-Public Use
  Company Number: ES-PFIZER INC-2020028100

PATIENT
  Age: 66 Year
  Sex: Male

DRUGS (6)
  1. AMIODARONE HCL [Suspect]
     Active Substance: AMIODARONE HYDROCHLORIDE
     Indication: MITRAL VALVE INCOMPETENCE
     Dosage: 200 MG 5 DAYS/WEEK
     Route: 065
  2. LOSARTAN. [Concomitant]
     Active Substance: LOSARTAN
     Dosage: 50 MG, 1X/DAY (HALF A TABLET/DAY)
     Route: 065
  3. BISOPROLOL [Concomitant]
     Active Substance: BISOPROLOL
     Indication: ATRIAL FIBRILLATION
     Dosage: 2.5 MG, 1X/DAY (HALF A TABLET/DAY)
     Route: 065
  4. AMIODARONE HCL [Suspect]
     Active Substance: AMIODARONE HYDROCHLORIDE
     Dosage: 200 MG WAS REDUCED FROM 5 TO 2 TABLETS WEEKLY
  5. ACENOCOUMAROL [Concomitant]
     Active Substance: ACENOCOUMAROL
     Dosage: 4 MG
     Route: 065
  6. BISOPROLOL [Concomitant]
     Active Substance: BISOPROLOL
     Dosage: 2.5 UNK, 2X/DAY (INCREASED FROM 2.5 MG TO HALF EVERY 12 H)
     Route: 065

REACTIONS (1)
  - Hyperthyroidism [Recovered/Resolved]
